FAERS Safety Report 7428500-0 (Version None)
Quarter: 2011Q2

REPORT INFORMATION
  Report Type: 
  Country: None (occurrence: None)
  Receive Date: 20110421
  Receipt Date: 20110408
  Transmission Date: 20111010
  Serious: Yes (Other)
  Sender: FDA-Public Use
  Company Number: PHHY2011US30056

PATIENT
  Age: 53 Year
  Sex: Female

DRUGS (9)
  1. GABAPENTIN [Concomitant]
  2. MULTI-VIT [Concomitant]
  3. METOPROLOL TARTRATE [Suspect]
     Dosage: 50 MG IN MORNING AND 100 MG IN EVENING
  4. TEKTURNA [Suspect]
     Dosage: 1 DF, 150 MG
  5. DIOVAN HCT [Suspect]
     Dosage: 1 DF, QD
  6. HYDROCODONE [Concomitant]
  7. CALCIUM [Concomitant]
  8. ASPIRIN [Concomitant]
  9. LOVASTATIN [Concomitant]

REACTIONS (6)
  - PAIN [None]
  - BLOOD PRESSURE INCREASED [None]
  - ERYTHEMA [None]
  - ABDOMINAL PAIN UPPER [None]
  - ABDOMINAL HERNIA [None]
  - BLOOD PRESSURE INADEQUATELY CONTROLLED [None]
